FAERS Safety Report 13150037 (Version 1)
Quarter: 2017Q1

REPORT INFORMATION
  Report Type: Spontaneous
  Country: US (occurrence: US)
  Receive Date: 20170124
  Receipt Date: 20170124
  Transmission Date: 20170428
  Serious: No
  Sender: FDA-Public Use
  Company Number: US-AMGEN-USASP2016182673

PATIENT
  Age: 64 Year
  Sex: Female
  Weight: 68 kg

DRUGS (1)
  1. REPATHA [Suspect]
     Active Substance: EVOLOCUMAB
     Indication: BLOOD CHOLESTEROL
     Dosage: 140 MG, Q2WK
     Route: 065
     Dates: start: 20151228

REACTIONS (3)
  - Injection site mass [Not Recovered/Not Resolved]
  - Injection site bruising [Not Recovered/Not Resolved]
  - Mass [Unknown]

NARRATIVE: CASE EVENT DATE: 201612
